FAERS Safety Report 17463226 (Version 4)
Quarter: 2025Q2

REPORT INFORMATION
  Report Type: Report from Study
  Country: DE (occurrence: DE)
  Receive Date: 20200226
  Receipt Date: 20250409
  Transmission Date: 20250717
  Serious: Yes (Congenital Anomaly, Other)
  Sender: AUROBINDO
  Company Number: DE-009507513-2002DEU004408

PATIENT

DRUGS (1)
  1. LOSARTAN [Suspect]
     Active Substance: LOSARTAN
     Indication: Product used for unknown indication
     Route: 064

REACTIONS (5)
  - Foetal disorder [Recovered/Resolved]
  - Foetal exposure during pregnancy [Recovered/Resolved]
  - Oligohydramnios [Recovered/Resolved]
  - Foetal renal impairment [Unknown]
  - Thrombosis [Unknown]
